FAERS Safety Report 6902386-2 (Version None)
Quarter: 2010Q3

REPORT INFORMATION
  Report Type: 
  Country: None (occurrence: None)
  Receive Date: 20100803
  Receipt Date: 20080523
  Transmission Date: 20110219
  Serious: No
  Sender: FDA-Public Use
  Company Number: US-PFIZER INC-2008015031

PATIENT
  Sex: Male
  Weight: 84.4 kg

DRUGS (2)
  1. LYRICA [Suspect]
     Indication: FIBROMYALGIA
     Dates: start: 20071201
  2. TRAMADOL HYDROCHLORIDE [Concomitant]

REACTIONS (5)
  - DIZZINESS [None]
  - DRUG INEFFECTIVE [None]
  - EYE PAIN [None]
  - VISION BLURRED [None]
  - WEIGHT INCREASED [None]
